FAERS Safety Report 17436299 (Version 1)
Quarter: 2020Q1

REPORT INFORMATION
  Report Type: Spontaneous
  Country: US (occurrence: US)
  Receive Date: 20200219
  Receipt Date: 20200219
  Transmission Date: 20200409
  Serious: No
  Sender: FDA-Public Use
  Company Number: US-LANTHEUS-LMI-2019-00390

PATIENT
  Age: 69 Year
  Sex: Male

DRUGS (2)
  1. DEFINITY [Suspect]
     Active Substance: PERFLUTREN
     Indication: STRESS ECHOCARDIOGRAM
     Dosage: 6 MILLILITER (2 ML DEFINITY PREPARED IN 8 ML DILUENT)
     Route: 040
     Dates: start: 20190521, end: 20190521
  2. DOBUTAMINE [Suspect]
     Active Substance: DOBUTAMINE HYDROCHLORIDE
     Indication: STRESS ECHOCARDIOGRAM
     Dosage: UNK
     Route: 042
     Dates: start: 20190521, end: 20190521

REACTIONS (3)
  - Chest discomfort [Recovered/Resolved]
  - Back pain [Recovered/Resolved]
  - Feeling abnormal [Recovered/Resolved]

NARRATIVE: CASE EVENT DATE: 20190521
